FAERS Safety Report 24620566 (Version 4)
Quarter: 2025Q2

REPORT INFORMATION
  Report Type: Report from Study
  Country: JP (occurrence: JP)
  Receive Date: 20241114
  Receipt Date: 20250606
  Transmission Date: 20250716
  Serious: Yes (Death)
  Sender: SHIONOGI
  Company Number: JP-shionogi-202400002474

PATIENT
  Age: 75 Year
  Sex: Male
  Weight: 43.3 kg

DRUGS (36)
  1. CEFIDEROCOL [Suspect]
     Active Substance: CEFIDEROCOL
     Indication: Lung abscess
     Route: 041
     Dates: start: 20241101, end: 20241107
  2. CEFIDEROCOL [Suspect]
     Active Substance: CEFIDEROCOL
     Dosage: ADMINISTERED AT 2 G X DOSE, 1 G X TWICE
     Route: 041
     Dates: start: 20241108, end: 20241109
  3. Medicon Tablets 15mg [Concomitant]
     Indication: Product used for unknown indication
     Route: 048
     Dates: start: 20241101, end: 20241109
  4. MEROPENEM [Concomitant]
     Active Substance: MEROPENEM
     Indication: Lung abscess
     Dosage: PRIOR THAN 2 WEEKS BEFORE THE START OF FETROJA
     Route: 065
     Dates: end: 20241101
  5. LEVOTHYROXINE SODIUM [Concomitant]
     Active Substance: LEVOTHYROXINE SODIUM
     Indication: Product used for unknown indication
     Route: 048
     Dates: start: 20241101, end: 20241104
  6. LEVOTHYROXINE SODIUM [Concomitant]
     Active Substance: LEVOTHYROXINE SODIUM
     Route: 048
     Dates: start: 20241101, end: 20241104
  7. LEVOTHYROXINE SODIUM [Concomitant]
     Active Substance: LEVOTHYROXINE SODIUM
     Route: 048
     Dates: start: 20241101, end: 20241109
  8. SILODOSIN OD [Concomitant]
     Indication: Product used for unknown indication
     Route: 048
     Dates: start: 20241101, end: 20241109
  9. CABOMETYX [Concomitant]
     Active Substance: CABOZANTINIB S-MALATE
     Indication: Product used for unknown indication
     Route: 048
     Dates: start: 20241101, end: 20241104
  10. FEBUXOSTAT [Concomitant]
     Active Substance: FEBUXOSTAT
     Indication: Product used for unknown indication
     Route: 048
     Dates: start: 20241101, end: 20241104
  11. RIVAROXABAN [Concomitant]
     Active Substance: RIVAROXABAN
     Indication: Product used for unknown indication
     Route: 048
     Dates: start: 20241101, end: 20241109
  12. FUDOSTEINE [Concomitant]
     Active Substance: FUDOSTEINE
     Indication: Product used for unknown indication
     Route: 048
     Dates: start: 20241101, end: 20241109
  13. MIYA-BM [Concomitant]
     Active Substance: CLOSTRIDIUM BUTYRICUM SPORES STRAIN M-55
     Indication: Product used for unknown indication
     Route: 048
     Dates: start: 20241101, end: 20241109
  14. LOPERAMIDE HYDROCHLORIDE [Concomitant]
     Active Substance: LOPERAMIDE HYDROCHLORIDE
     Indication: Product used for unknown indication
     Route: 048
     Dates: start: 20241101, end: 20241109
  15. CLOBETASOL [Concomitant]
     Active Substance: CLOBETASOL
     Indication: Product used for unknown indication
     Route: 065
     Dates: start: 20241101, end: 20241101
  16. BISOLVON [Concomitant]
     Active Substance: BROMHEXINE HYDROCHLORIDE
     Indication: Product used for unknown indication
     Route: 065
     Dates: start: 20241106, end: 20241106
  17. ISOTONIC SODIUM CHLORIDE SOLUTION [Concomitant]
     Active Substance: SODIUM CHLORIDE
     Indication: Product used for unknown indication
     Route: 065
     Dates: start: 20241106, end: 20241106
  18. POTASSIUM ASPARTATE [Concomitant]
     Active Substance: POTASSIUM ASPARTATE
     Indication: Product used for unknown indication
     Dosage: PRESCRIBED BASED ON INGREDIENT AMOUNT
     Route: 048
     Dates: start: 20241107, end: 20241109
  19. YD SOLITA T NO.3 [Concomitant]
     Indication: Product used for unknown indication
     Route: 065
     Dates: start: 20241108, end: 20241108
  20. CARBAZOCHROME SODIUM SULFONATE [Concomitant]
     Active Substance: CARBAZOCHROME SODIUM SULFONATE
     Indication: Product used for unknown indication
     Route: 065
     Dates: start: 20241105, end: 20241105
  21. ISOTONIC SODIUM CHLORIDE SOLUTION [Concomitant]
     Active Substance: SODIUM CHLORIDE
     Indication: Product used for unknown indication
     Route: 065
     Dates: start: 20241101, end: 20241105
  22. ISOTONIC SODIUM CHLORIDE SOLUTION [Concomitant]
     Active Substance: SODIUM CHLORIDE
     Route: 065
     Dates: start: 20241107, end: 20241108
  23. ISOTONIC SODIUM CHLORIDE SOLUTION [Concomitant]
     Active Substance: SODIUM CHLORIDE
     Route: 065
     Dates: start: 20241101, end: 20241109
  24. ISOTONIC SODIUM CHLORIDE SOLUTION [Concomitant]
     Active Substance: SODIUM CHLORIDE
     Route: 065
     Dates: start: 20241106, end: 20241107
  25. ISOTONIC SODIUM CHLORIDE SOLUTION [Concomitant]
     Active Substance: SODIUM CHLORIDE
     Route: 065
     Dates: start: 20241105, end: 20241105
  26. ISOTONIC SODIUM CHLORIDE SOLUTION [Concomitant]
     Active Substance: SODIUM CHLORIDE
     Route: 065
     Dates: start: 20241108, end: 20241108
  27. LASIX [Concomitant]
     Active Substance: FUROSEMIDE
     Indication: Product used for unknown indication
     Route: 065
     Dates: start: 20241105, end: 20241108
  28. DEXTROSE [Concomitant]
     Active Substance: DEXTROSE MONOHYDRATE
     Indication: Product used for unknown indication
     Route: 065
     Dates: start: 20241101, end: 20241101
  29. DEXTROSE [Concomitant]
     Active Substance: DEXTROSE MONOHYDRATE
     Route: 065
     Dates: start: 20241105, end: 20241109
  30. MEPERIDINE HYDROCHLORIDE [Concomitant]
     Active Substance: MEPERIDINE HYDROCHLORIDE
     Indication: Product used for unknown indication
     Route: 065
     Dates: start: 20241105, end: 20241105
  31. MIDAZOLAM HYDROCHLORIDE [Concomitant]
     Active Substance: MIDAZOLAM HYDROCHLORIDE
     Indication: Product used for unknown indication
     Route: 065
     Dates: start: 20241105, end: 20241105
  32. NALOXONE HYDROCHLORIDE [Concomitant]
     Active Substance: NALOXONE HYDROCHLORIDE
     Indication: Product used for unknown indication
     Route: 065
     Dates: start: 20241105, end: 20241105
  33. FLUMAZENIL [Concomitant]
     Active Substance: FLUMAZENIL
     Indication: Product used for unknown indication
     Route: 065
     Dates: start: 20241105, end: 20241105
  34. TRANSAMIN [Concomitant]
     Active Substance: TRANEXAMIC ACID
     Indication: Product used for unknown indication
     Route: 065
     Dates: start: 20241105, end: 20241105
  35. NICARDIPINE HYDROCHLORIDE [Concomitant]
     Active Substance: NICARDIPINE HYDROCHLORIDE
     Indication: Product used for unknown indication
     Route: 065
     Dates: start: 20241105, end: 20241105
  36. CANRENOATE POTASSIUM [Concomitant]
     Active Substance: CANRENOATE POTASSIUM
     Indication: Product used for unknown indication
     Route: 065
     Dates: start: 20241106, end: 20241108

REACTIONS (1)
  - Lung abscess [Fatal]

NARRATIVE: CASE EVENT DATE: 20241109
